FAERS Safety Report 15683260 (Version 1)
Quarter: 2018Q4

REPORT INFORMATION
  Report Type: Spontaneous
  Country: ES (occurrence: ES)
  Receive Date: 20181204
  Receipt Date: 20181204
  Transmission Date: 20190205
  Serious: Yes (Hospitalization, Other)
  Sender: FDA-Public Use
  Company Number: ES-TEVA-2018-ES-981359

PATIENT
  Age: 67 Year
  Sex: Male

DRUGS (5)
  1. ADIRO 300MG 30 COMPRIMIDOS GASTRORRESISTENTES EFG [Concomitant]
     Dosage: 300 MILLIGRAM DAILY;  IN MEDICAL HISTORY OF PRIMARY HEALTH CARE CONSISTS ADIRO 300MG 1/24H
     Route: 048
  2. AZITROMICINA 500 MG 3 COMPRIMIDOS [Suspect]
     Active Substance: AZITHROMYCIN
     Indication: NASAL OBSTRUCTION
     Dosage: 500 MILLIGRAM DAILY;
     Route: 048
     Dates: start: 20180910, end: 20180911
  3. CAPOTEN [Concomitant]
     Active Substance: CAPTOPRIL
     Route: 048
  4. OMEPRAZOL (2141A) [Concomitant]
     Active Substance: OMEPRAZOLE
     Route: 065
  5. IBUPROFENO (1769A) [Concomitant]
     Active Substance: IBUPROFEN
     Dosage: CURRENT HISTORY OF HIGH INTERNAL MEDICINE REPORT:  ^YOU^VE BEEN TAKING 1-2CP DAILY IN THE LAST WEEK
     Route: 048

REACTIONS (4)
  - Bradycardia [Recovered/Resolved]
  - Hypertensive crisis [Recovered/Resolved]
  - Anaphylactic reaction [Recovered/Resolved]
  - Chest pain [Recovered/Resolved]

NARRATIVE: CASE EVENT DATE: 20180910
